FAERS Safety Report 5818277-4 (Version None)
Quarter: 2008Q3

REPORT INFORMATION
  Report Type: 
  Country: None (occurrence: None)
  Receive Date: 20080717
  Receipt Date: 20080707
  Transmission Date: 20090109
  Serious: Yes (Hospitalization)
  Sender: FDA-Public Use
  Company Number: 1-16371901/MED-08123

PATIENT
  Sex: Female

DRUGS (7)
  1. GABAPENTIN [Suspect]
     Indication: DIABETIC NEUROPATHY
     Dosage: 150 MG THREE TIMES DAILY, ORAL
     Route: 048
  2. ASPIRIN [Concomitant]
  3. DILTIAZEM HCL [Concomitant]
  4. INSULIN LISPRO [Concomitant]
  5. RAMIPRIL [Concomitant]
  6. HALOPERIDOL [Concomitant]
  7. LANSOPRAZOLE [Concomitant]

REACTIONS (2)
  - RENAL FAILURE ACUTE [None]
  - RHABDOMYOLYSIS [None]
